FAERS Safety Report 5306281-4 (Version None)
Quarter: 2007Q2

REPORT INFORMATION
  Report Type: 
  Country: None (occurrence: None)
  Receive Date: 20070424
  Receipt Date: 20070312
  Transmission Date: 20071010
  Serious: Yes (Hospitalization)
  Sender: FDA-Public Use
  Company Number: US-SANOFI-SYNTHELABO-A03200702401

PATIENT
  Age: 11 Year
  Sex: Female

DRUGS (1)
  1. AMBIEN [Suspect]
     Dosage: UP TO THREE 10 MG TABLETS
     Route: 048

REACTIONS (4)
  - CONVULSION [None]
  - INTENTIONAL DRUG MISUSE [None]
  - INTENTIONAL OVERDOSE [None]
  - LOSS OF CONSCIOUSNESS [None]
